FAERS Safety Report 14129072 (Version 2)
Quarter: 2017Q4

REPORT INFORMATION
  Report Type: Spontaneous
  Country: IT (occurrence: IT)
  Receive Date: 20171026
  Receipt Date: 20171102
  Transmission Date: 20180321
  Serious: Yes (Hospitalization, Other)
  Sender: FDA-Public Use
  Company Number: IT-MYLANLABS-2017M1066063

PATIENT
  Age: 67 Year
  Sex: Female

DRUGS (4)
  1. SERTRALINE [Suspect]
     Active Substance: SERTRALINE HYDROCHLORIDE
     Indication: DEPRESSION
     Dosage: 150 MG TOTAL
     Route: 048
  2. DEPAKIN CHRONO [Suspect]
     Active Substance: VALPROIC ACID
     Indication: BIPOLAR DISORDER
     Dosage: 1500 MG TOTAL
     Route: 048
  3. EN [Suspect]
     Active Substance: DELORAZEPAM
     Indication: INSOMNIA
     Dosage: 20 MG TOTAL
     Route: 048
  4. MIRTAZAPINE. [Suspect]
     Active Substance: MIRTAZAPINE
     Indication: DEPRESSION
     Dosage: 90 MG TOTAL
     Route: 048

REACTIONS (6)
  - Poisoning [Recovering/Resolving]
  - Sopor [Recovering/Resolving]
  - Hypotension [Recovering/Resolving]
  - Confusional state [Recovering/Resolving]
  - Drug abuse [Unknown]
  - Intentional self-injury [Recovering/Resolving]

NARRATIVE: CASE EVENT DATE: 20170207
